FAERS Safety Report 14045953 (Version 2)
Quarter: 2017Q4

REPORT INFORMATION
  Report Type: Report from Study
  Country: US (occurrence: US)
  Receive Date: 20171005
  Receipt Date: 20171023
  Transmission Date: 20180321
  Serious: No
  Sender: FDA-Public Use
  Company Number: US-PFIZER INC-2017423872

PATIENT
  Age: 64 Year
  Sex: Male
  Weight: 76 kg

DRUGS (4)
  1. LENVIMA [Suspect]
     Active Substance: LENVATINIB
     Dosage: 14 MG, 1X/DAY
     Route: 048
     Dates: start: 20170821
  2. LENVIMA [Suspect]
     Active Substance: LENVATINIB
     Dosage: 14 MG, 1X/DAY
     Route: 048
     Dates: start: 20170607, end: 2017
  3. IBUPROFEN. [Suspect]
     Active Substance: IBUPROFEN
     Dosage: UNK
  4. LENVIMA [Suspect]
     Active Substance: LENVATINIB
     Indication: THYROID CANCER
     Dosage: 24 MG, 1X/DAY
     Route: 048
     Dates: start: 20170222, end: 20170606

REACTIONS (15)
  - Pain in extremity [Recovered/Resolved]
  - Cough [Recovered/Resolved]
  - Rash [Recovered/Resolved]
  - Chest pain [Recovered/Resolved]
  - Musculoskeletal chest pain [Unknown]
  - Diarrhoea [Recovered/Resolved]
  - Pain in extremity [Unknown]
  - Back pain [Unknown]
  - Pruritus [Recovered/Resolved]
  - Dysphonia [Unknown]
  - Lip swelling [Recovered/Resolved]
  - Oral pain [Recovered/Resolved]
  - Constipation [Recovered/Resolved]
  - Chest discomfort [Recovered/Resolved]
  - Fatigue [Unknown]

NARRATIVE: CASE EVENT DATE: 201702
